FAERS Safety Report 6369806-6 (Version None)
Quarter: 2009Q3

REPORT INFORMATION
  Report Type: 
  Country: None (occurrence: None)
  Receive Date: 20090922
  Receipt Date: 20090922
  Transmission Date: 20100115
  Serious: Yes (Hospitalization)
  Sender: FDA-Public Use
  Company Number: None

PATIENT
  Age: 71 Year
  Sex: Female
  Weight: 71.6683 kg

DRUGS (2)
  1. HYALURONIDASE INJ [Suspect]
     Indication: ANAESTHESIA PROCEDURE
     Dosage: USUAL DOSE .2-.3 CC PERIBULBAR EYE BLOCK X 1
     Dates: start: 20090909
  2. LIDOCAINE HCL [Suspect]
     Route: 047

REACTIONS (3)
  - BLINDNESS UNILATERAL [None]
  - BLOOD PRESSURE INADEQUATELY CONTROLLED [None]
  - PERIORBITAL CELLULITIS [None]
